FAERS Safety Report 19174951 (Version 1)
Quarter: 2021Q2

REPORT INFORMATION
  Report Type: Spontaneous
  Country: CN (occurrence: CN)
  Receive Date: 20210424
  Receipt Date: 20210424
  Transmission Date: 20210717
  Serious: Yes (Life-Threatening, Other)
  Sender: FDA-Public Use
  Company Number: CN-BAXTER-2021BAX008252

PATIENT
  Age: 39 Year
  Sex: Female
  Weight: 55 kg

DRUGS (4)
  1. 0.9% SODIUM CHLORIDE INJECTION [Suspect]
     Active Substance: SODIUM CHLORIDE
     Indication: MEDICATION DILUTION
     Dosage: 0.9% SODIUM CHLORIDE INJECTION 100 ML + CYCLOPHOSPHAMIDE FOR INJECTION 900 MG, D1
     Route: 041
     Dates: start: 20210323, end: 20210323
  2. 5% GLUCOSE  INJECTION [Suspect]
     Active Substance: DEXTROSE
     Indication: MEDICATION DILUTION
     Dosage: 5% GLUCOSE INJECTION 100 ML + PIRARUBICIN HYDROCHLORIDE FOR INJECTION 90 MG D1
     Route: 041
     Dates: start: 20210323, end: 20210323
  3. PIRARUBICIN HYDROCHLORIDE [Suspect]
     Active Substance: PIRARUBICIN HYDROCHLORIDE
     Indication: BREAST CANCER
     Dosage: 5% GLUCOSE INJECTION 100 ML + PIRARUBICIN HYDROCHLORIDE FOR INJECTION 90 MG, DAY 1
     Route: 041
     Dates: start: 20210323, end: 20210323
  4. ENDOXAN [Suspect]
     Active Substance: CYCLOPHOSPHAMIDE
     Indication: BREAST CANCER
     Dosage: 0.9% SODIUM CHLORIDE INJECTION 100 ML + CYCLOPHOSPHAMIDE FOR INJECTION 900 MG, DAY 1
     Route: 041
     Dates: start: 20210323, end: 20210323

REACTIONS (2)
  - Leukostasis syndrome [Recovered/Resolved]
  - Myelosuppression [Recovered/Resolved]

NARRATIVE: CASE EVENT DATE: 20210330
